FAERS Safety Report 17396809 (Version 5)
Quarter: 2021Q4

REPORT INFORMATION
  Report Type: Spontaneous
  Country: US (occurrence: US)
  Receive Date: 20200210
  Receipt Date: 20211228
  Transmission Date: 20220303
  Serious: Yes (Hospitalization, Other)
  Sender: FDA-Public Use
  Company Number: US-PFIZER INC-2020057970

PATIENT
  Age: 38 Year
  Sex: Male

DRUGS (6)
  1. LYRICA [Suspect]
     Active Substance: PREGABALIN
     Indication: Affective disorder
     Dosage: 300 MG, 2X/DAY
     Route: 048
  2. LYRICA [Suspect]
     Active Substance: PREGABALIN
     Indication: Back pain
  3. LYRICA [Suspect]
     Active Substance: PREGABALIN
     Indication: Headache
  4. LYRICA [Suspect]
     Active Substance: PREGABALIN
     Indication: Migraine
  5. LYRICA [Suspect]
     Active Substance: PREGABALIN
     Indication: Anxiety
  6. LYRICA [Suspect]
     Active Substance: PREGABALIN
     Indication: Fibromyalgia

REACTIONS (10)
  - Rib fracture [Not Recovered/Not Resolved]
  - Joint injury [Recovering/Resolving]
  - Generalised tonic-clonic seizure [Unknown]
  - Anxiety [Not Recovered/Not Resolved]
  - Insomnia [Unknown]
  - Depression [Unknown]
  - Cough [Unknown]
  - Nasopharyngitis [Unknown]
  - Intentional product misuse [Unknown]
  - Product dose omission in error [Unknown]

NARRATIVE: CASE EVENT DATE: 20200306
